FAERS Safety Report 25439002 (Version 1)
Quarter: 2025Q2

REPORT INFORMATION
  Report Type: Report from Study
  Country: CO (occurrence: CO)
  Receive Date: 20250616
  Receipt Date: 20250616
  Transmission Date: 20250717
  Serious: Yes (Hospitalization)
  Sender: ABBVIE
  Company Number: CO-ABBVIE-6325146

PATIENT
  Age: 65 Year
  Sex: Male

DRUGS (2)
  1. BOTOX [Suspect]
     Active Substance: ONABOTULINUMTOXINA
     Indication: Dystonia
     Route: 030
     Dates: start: 20231201, end: 20231201
  2. BOTOX [Suspect]
     Active Substance: ONABOTULINUMTOXINA
     Indication: Dystonia
     Route: 030
     Dates: start: 20240914, end: 20240914

REACTIONS (1)
  - Prostatic operation [Recovered/Resolved]

NARRATIVE: CASE EVENT DATE: 20250504
